FAERS Safety Report 7242081-6 (Version None)
Quarter: 2011Q1

REPORT INFORMATION
  Report Type: 
  Country: None (occurrence: None)
  Receive Date: 20110124
  Receipt Date: 20110112
  Transmission Date: 20110831
  Serious: No
  Sender: FDA-Public Use
  Company Number: US-B.I. PHARMACEUTICALS,INC./RIDGEFIELD-2011-BP-01161BP

PATIENT
  Sex: Female

DRUGS (6)
  1. ZOLOFT [Concomitant]
     Indication: ANXIETY
     Dosage: 50 MG
  2. MULTI-VITAMIN [Concomitant]
     Indication: SUPPLEMENTATION THERAPY
  3. PRADAXA [Suspect]
     Indication: ATRIAL FIBRILLATION
     Dosage: 300 MG
     Route: 048
     Dates: start: 20101101
  4. ASCORBIC ACID [Concomitant]
     Indication: SUPPLEMENTATION THERAPY
  5. CALCIUM [Concomitant]
     Indication: SUPPLEMENTATION THERAPY
  6. ASPIRIN [Concomitant]
     Dosage: 81 MG

REACTIONS (3)
  - CONTUSION [None]
  - ABDOMINAL DISCOMFORT [None]
  - THROAT IRRITATION [None]
